FAERS Safety Report 9415661 (Version 1)
Quarter: 2013Q3

REPORT INFORMATION
  Report Type: Spontaneous
  Country: IT (occurrence: IT)
  Receive Date: 20130723
  Receipt Date: 20130723
  Transmission Date: 20140515
  Serious: Yes (Hospitalization)
  Sender: FDA-Public Use
  Company Number: IT-ACTAVIS-2013-12658

PATIENT
  Age: 19 Year
  Sex: Male

DRUGS (2)
  1. PARACETAMOL (UNKNOWN) [Suspect]
     Indication: OROPHARYNGEAL PAIN
     Dosage: 1000 MG, DAILY
     Route: 048
     Dates: start: 20130602, end: 20130605
  2. OKI [Suspect]
     Indication: OROPHARYNGEAL PAIN
     Dosage: 400 MG, DAILY
     Route: 048
     Dates: start: 20130602, end: 20130605

REACTIONS (1)
  - Stevens-Johnson syndrome [Recovered/Resolved]
